FAERS Safety Report 11679863 (Version 3)
Quarter: 2015Q4

REPORT INFORMATION
  Report Type: Spontaneous
  Country: US (occurrence: US)
  Receive Date: 20151027
  Receipt Date: 20151110
  Transmission Date: 20160304
  Serious: No
  Sender: FDA-Public Use
  Company Number: US-ELI_LILLY_AND_COMPANY-US201005003667

PATIENT
  Sex: Female

DRUGS (11)
  1. FORTEO [Suspect]
     Active Substance: TERIPARATIDE
     Dosage: 20 UG, DAILY (1/D)
  2. FORTEO [Suspect]
     Active Substance: TERIPARATIDE
     Dosage: 20 UG, DAILY (1/D)
  3. FORTEO [Suspect]
     Active Substance: TERIPARATIDE
     Dosage: 20 UG, DAILY (1/D)
  4. FORTEO [Suspect]
     Active Substance: TERIPARATIDE
     Dosage: 20 UG, QD
     Dates: end: 20120214
  5. FORTEO [Suspect]
     Active Substance: TERIPARATIDE
     Dosage: 20 UG, DAILY (1/D)
  6. FORTEO [Suspect]
     Active Substance: TERIPARATIDE
     Dosage: 20 UG, QD
  7. FORTEO [Suspect]
     Active Substance: TERIPARATIDE
     Dosage: 20 UG, QD
  8. FORTEO [Suspect]
     Active Substance: TERIPARATIDE
     Indication: OSTEOPOROSIS
     Dosage: 20 UG, DAILY (1/D)
     Dates: start: 20100501
  9. FORTEO [Suspect]
     Active Substance: TERIPARATIDE
     Dosage: 20 UG, DAILY (1/D)
  10. FORTEO [Suspect]
     Active Substance: TERIPARATIDE
     Dosage: 20 UG, DAILY (1/D)
  11. FORTEO [Suspect]
     Active Substance: TERIPARATIDE
     Dosage: 20 UG, QD

REACTIONS (18)
  - Injection site haemorrhage [Unknown]
  - Muscle spasms [Recovering/Resolving]
  - Back pain [Unknown]
  - Pain in extremity [Recovering/Resolving]
  - Muscle strain [Unknown]
  - Drug dose omission [Recovered/Resolved]
  - Skin disorder [Recovering/Resolving]
  - Pain in extremity [Not Recovered/Not Resolved]
  - Erythema [Unknown]
  - Pain [Unknown]
  - Injection site bruising [Recovered/Resolved]
  - Constipation [Unknown]
  - Drug ineffective [Unknown]
  - Vein disorder [Unknown]
  - Bone density abnormal [Unknown]
  - Fatigue [Not Recovered/Not Resolved]
  - Dry skin [Recovering/Resolving]
  - Skin wrinkling [Unknown]

NARRATIVE: CASE EVENT DATE: 2010
